FAERS Safety Report 4592020-1 (Version None)
Quarter: 2005Q1

REPORT INFORMATION
  Report Type: 
  Country: None (occurrence: None)
  Receive Date: 20050125
  Receipt Date: 20040825
  Transmission Date: 20050727
  Serious: No
  Sender: FDA-Public Use
  Company Number: USA040773289

PATIENT
  Age: 81 Year
  Sex: Female

DRUGS (1)
  1. FORTEO [Suspect]
     Indication: SPINAL FRACTURE
     Dosage: 20 UG DAY
     Dates: start: 20040707

REACTIONS (3)
  - CONDITION AGGRAVATED [None]
  - MOBILITY DECREASED [None]
  - PAIN [None]
